FAERS Safety Report 21642034 (Version 2)
Quarter: 2024Q3

REPORT INFORMATION
  Report Type: Report from Study
  Country: US (occurrence: US)
  Receive Date: 20221125
  Receipt Date: 20240925
  Transmission Date: 20241016
  Serious: No
  Sender: GLAXOSMITHKLINE
  Company Number: US-GLAXOSMITHKLINE-US2022AMR174766

PATIENT
  Sex: Female

DRUGS (2)
  1. NIRAPARIB [Suspect]
     Active Substance: NIRAPARIB
     Indication: Lip and/or oral cavity cancer
     Dosage: 200 MG, QD
  2. WHOLE BLOOD [Concomitant]
     Active Substance: WHOLE BLOOD
     Indication: Blood test abnormal
     Dosage: UNK
     Dates: start: 20221114

REACTIONS (7)
  - Illness [Unknown]
  - Full blood count abnormal [Unknown]
  - Pain [Unknown]
  - Gait disturbance [Unknown]
  - Dehydration [Unknown]
  - Dysphagia [Unknown]
  - Off label use [Unknown]
